FAERS Safety Report 20562752 (Version 1)
Quarter: 2022Q1

REPORT INFORMATION
  Report Type: Report from Study
  Country: CO (occurrence: CO)
  Receive Date: 20220307
  Receipt Date: 20220307
  Transmission Date: 20220424
  Serious: Yes (Hospitalization)
  Sender: FDA-Public Use
  Company Number: CO-JNJFOC-20220162785

PATIENT
  Age: 72 Year
  Sex: Female
  Weight: 65 kg

DRUGS (3)
  1. IMBRUVICA [Suspect]
     Active Substance: IBRUTINIB
     Indication: Chronic lymphocytic leukaemia
     Route: 048
     Dates: start: 20170919
  2. COVID-19 VACCINE [Concomitant]
     Indication: Product used for unknown indication
     Dosage: COVID-19 VACCINE DOSE 09-MAY-2021
     Dates: start: 202104
  3. COVID-19 VACCINE [Concomitant]
     Dates: start: 20210509

REACTIONS (5)
  - Pneumonia [Recovering/Resolving]
  - Gastritis [Recovering/Resolving]
  - Dysphonia [Not Recovered/Not Resolved]
  - Secretion discharge [Not Recovered/Not Resolved]
  - Diarrhoea [Not Recovered/Not Resolved]

NARRATIVE: CASE EVENT DATE: 20220113
